FAERS Safety Report 14546315 (Version 1)
Quarter: 2018Q1

REPORT INFORMATION
  Report Type: Other
  Country: US (occurrence: US)
  Receive Date: 20180219
  Receipt Date: 20180219
  Transmission Date: 20180509
  Serious: Yes (Hospitalization, Other)
  Sender: FDA-Public Use
  Company Number: US-ACI HEALTHCARE LIMITED-2042217

PATIENT
  Age: 75 Year
  Sex: Male

DRUGS (8)
  1. GABAPENTIN. [Suspect]
     Active Substance: GABAPENTIN
     Indication: PAIN
     Route: 061
  2. LIDOCAINE. [Suspect]
     Active Substance: LIDOCAINE
     Route: 061
  3. CLONIDINE. [Suspect]
     Active Substance: CLONIDINE
     Route: 061
  4. MEFENAMIC ACID. [Suspect]
     Active Substance: MEFENAMIC ACID
     Route: 061
  5. TELMISARTAN. [Concomitant]
     Active Substance: TELMISARTAN
     Route: 065
  6. KETAMINE [Suspect]
     Active Substance: KETAMINE
     Route: 061
  7. IMIPRAMINE [Suspect]
     Active Substance: IMIPRAMINE
     Route: 061
  8. PRAVASTATIN. [Concomitant]
     Active Substance: PRAVASTATIN
     Route: 065

REACTIONS (3)
  - Product use in unapproved indication [Unknown]
  - Delirium [Recovered/Resolved]
  - Mental status changes [Recovered/Resolved]
